FAERS Safety Report 4940913-5 (Version None)
Quarter: 2006Q1

REPORT INFORMATION
  Report Type: 
  Country: None (occurrence: None)
  Receive Date: 20060313
  Receipt Date: 20060302
  Transmission Date: 20060701
  Serious: Yes (Other)
  Sender: FDA-Public Use
  Company Number: US-JNJFOC-20060300932

PATIENT
  Sex: Female

DRUGS (2)
  1. KETOCONAZOLE [Suspect]
     Route: 048
  2. LUPRON DEPOT-PED [Suspect]
     Indication: PRECOCIOUS PUBERTY
     Route: 030

REACTIONS (2)
  - BONE CYST [None]
  - DISEASE RECURRENCE [None]
